FAERS Safety Report 5470492-8 (Version None)
Quarter: 2007Q3

REPORT INFORMATION
  Report Type: 
  Country: None (occurrence: None)
  Receive Date: 20070928
  Receipt Date: 20070915
  Transmission Date: 20080115
  Serious: Yes (Other)
  Sender: FDA-Public Use
  Company Number: PHEH2007US12600

PATIENT
  Age: 65 Year
  Sex: Male

DRUGS (2)
  1. LOTENSIN [Suspect]
     Dates: start: 19870101
  2. BENAZEPRIL HYDROCHLORIDE [Suspect]

REACTIONS (3)
  - MYOCARDIAL INFARCTION [None]
  - PHARYNGEAL OEDEMA [None]
  - TONGUE OEDEMA [None]
